FAERS Safety Report 5697796-8 (Version None)
Quarter: 2008Q2

REPORT INFORMATION
  Report Type: 
  Country: None (occurrence: None)
  Receive Date: 20080408
  Receipt Date: 20080402
  Transmission Date: 20081010
  Serious: Yes (Hospitalization)
  Sender: FDA-Public Use
  Company Number: GB-MERCK-0804GBR00018

PATIENT
  Age: 82 Year
  Sex: Female

DRUGS (4)
  1. INDOCIN [Suspect]
     Route: 048
  2. DICLOFENAC SODIUM AND MISOPROSTOL [Suspect]
     Indication: OSTEOARTHRITIS
     Route: 065
  3. POTASSIUM CHLORIDE [Suspect]
     Indication: CARDIAC FAILURE CONGESTIVE
     Route: 048
  4. FUROSEMIDE [Concomitant]
     Indication: CARDIAC FAILURE CONGESTIVE
     Route: 048

REACTIONS (1)
  - DUODENAL STENOSIS [None]
